FAERS Safety Report 8572997 (Version 3)
Quarter: 2013Q4

REPORT INFORMATION
  Report Type: Spontaneous
  Country: US (occurrence: US)
  Receive Date: 20120522
  Receipt Date: 20131203
  Transmission Date: 20140711
  Serious: Yes (Other)
  Sender: FDA-Public Use
  Company Number: US-BAYER-2012-049405

PATIENT
  Age: 28 Year
  Sex: Female
  Weight: 132.43 kg

DRUGS (4)
  1. YAZ [Suspect]
     Indication: CONTRACEPTION
     Dosage: UNK
     Dates: start: 2009, end: 2011
  2. YASMIN [Suspect]
     Indication: CONTRACEPTION
     Dosage: UNK
     Dates: start: 200901, end: 2011
  3. OCELLA [Suspect]
     Indication: CONTRACEPTION
     Dosage: UNK
     Dates: start: 200901, end: 2011
  4. IBUPROFEN [Concomitant]
     Indication: PAIN
     Dosage: 800 MG, PRN

REACTIONS (4)
  - Thrombosis [None]
  - Thrombophlebitis superficial [None]
  - Injury [None]
  - Thrombosis [None]
